FAERS Safety Report 6763510-8 (Version None)
Quarter: 2010Q2

REPORT INFORMATION
  Report Type: 
  Country: None (occurrence: None)
  Receive Date: 20100610
  Receipt Date: 20100531
  Transmission Date: 20101027
  Serious: Yes (Hospitalization)
  Sender: FDA-Public Use
  Company Number: JP-NOVOPROD-309386

PATIENT
  Sex: Male
  Weight: 51 kg

DRUGS (4)
  1. NORDITROPIN NORDIFLEX [Suspect]
     Indication: GROWTH HORMONE DEFICIENCY
     Dosage: 9.6 MG, QW
     Route: 058
     Dates: start: 20080425
  2. CORTRIL                            /00028601/ [Concomitant]
     Indication: DRUG USE FOR UNKNOWN INDICATION
     Dosage: 5 MG, QD
     Route: 048
     Dates: start: 20071030
  3. DESMOPRESSIN ACETATE [Concomitant]
     Indication: DRUG USE FOR UNKNOWN INDICATION
     Dosage: 7.5 MG, QD
     Route: 045
     Dates: start: 20071030
  4. PHENOBAL                           /00023201/ [Concomitant]
     Indication: CONVULSION PROPHYLAXIS
     Dosage: 60 MG, QD
     Route: 048
     Dates: start: 20080108

REACTIONS (2)
  - ASTROCYTOMA, LOW GRADE [None]
  - HYDROCEPHALUS [None]
